FAERS Safety Report 6788726-6 (Version None)
Quarter: 2010Q2

REPORT INFORMATION
  Report Type: 
  Country: None (occurrence: None)
  Receive Date: 20100623
  Receipt Date: 20080428
  Transmission Date: 20101027
  Serious: No
  Sender: FDA-Public Use
  Company Number: US-PFIZER INC-2008038301

PATIENT
  Age: 75 Year
  Sex: Male
  Weight: 86.18 kg

DRUGS (12)
  1. HALCION [Suspect]
     Indication: INSOMNIA
  2. LUNESTA [Suspect]
     Indication: INSOMNIA
     Route: 048
     Dates: start: 20080401
  3. PREVACID [Concomitant]
  4. FUROSEMIDE [Concomitant]
  5. ACETYLSALICYLIC ACID [Concomitant]
  6. LIPITOR [Concomitant]
  7. FISH OIL [Concomitant]
  8. GLIPIZIDE [Concomitant]
  9. NEPHRO-VITE [Concomitant]
  10. FOLIC ACID [Concomitant]
  11. PROPRANOLOL [Concomitant]
  12. BUSPIRONE HCL [Concomitant]

REACTIONS (2)
  - FATIGUE [None]
  - THERAPEUTIC RESPONSE DELAYED [None]
